FAERS Safety Report 9026137 (Version 1)
Quarter: 2012Q4

REPORT INFORMATION
  Report Type: Spontaneous
  Country: US (occurrence: None)
  Receive Date: 20121205
  Receipt Date: 20121205
  Transmission Date: 20130627
  Serious: Yes (Other)
  Sender: FDA-Public Use
  Company Number: None

PATIENT
  Age: 43 Year
  Sex: Female
  Weight: 58.97 kg

DRUGS (2)
  1. GONAL-F [Suspect]
     Indication: INFERTILITY
     Dates: start: 20120801, end: 20120805
  2. MENOPUR [Suspect]
     Indication: INFERTILITY
     Dosage: 150 IUV   i daily  inject
     Dates: start: 20120801, end: 20120805

REACTIONS (2)
  - Polymenorrhoea [None]
  - Breast swelling [None]
